FAERS Safety Report 19979703 (Version 2)
Quarter: 2021Q4

REPORT INFORMATION
  Report Type: Report from Study
  Country: None (occurrence: NL)
  Receive Date: 20211020
  Receipt Date: 20211025
  Transmission Date: 20220303
  Serious: No
  Sender: FDA-Public Use
  Company Number: NL-ABBVIE-19S-114-2817215-00

PATIENT
  Sex: Male
  Weight: 68 kg

DRUGS (8)
  1. CARBIDOPA\LEVODOPA [Suspect]
     Active Substance: CARBIDOPA\LEVODOPA
     Indication: Parkinson^s disease
     Dosage: MD: 6.3, CD: 4.4, ED: 2, CND: 3.1; END 2.0, 24 HOURS ADMINISTRATION
     Route: 050
     Dates: start: 20190426
  2. CARBIDOPA\LEVODOPA [Suspect]
     Active Substance: CARBIDOPA\LEVODOPA
     Dosage: MD: 6.3, CD: 4.4, ED: 2, CND: 3.1; END 2.0, 24 HOURS ADMINISTRATION
     Route: 050
  3. CARBIDOPA\LEVODOPA [Suspect]
     Active Substance: CARBIDOPA\LEVODOPA
     Dosage: MD 6.3, CD 4.4, ED 2.0, CND 3.3, END 1.5
     Route: 050
  4. CARBIDOPA\LEVODOPA [Suspect]
     Active Substance: CARBIDOPA\LEVODOPA
     Dosage: MD 6.3 ML, CD 4.3 ML/H, ED 2.0 ML, CND 3.2 ML/H
     Route: 050
  5. PRAMIPEXOLE [Concomitant]
     Active Substance: PRAMIPEXOLE
     Indication: Product used for unknown indication
  6. LANOLIN\ZINC OXIDE [Concomitant]
     Active Substance: LANOLIN\ZINC OXIDE
     Indication: Stoma site reaction
  7. OXAZEPAM [Concomitant]
     Active Substance: OXAZEPAM
     Indication: Product used for unknown indication
  8. NEUPRO [Concomitant]
     Active Substance: ROTIGOTINE
     Indication: Product used for unknown indication
     Dosage: PER 24 HOURS
     Route: 062

REACTIONS (42)
  - Hallucination [Not Recovered/Not Resolved]
  - Restlessness [Not Recovered/Not Resolved]
  - Dyschezia [Recovered/Resolved]
  - Fibroma [Recovered/Resolved]
  - Underdose [Recovered/Resolved]
  - Memory impairment [Recovered/Resolved]
  - Device occlusion [Unknown]
  - Device difficult to use [Unknown]
  - Medical device site warmth [Unknown]
  - Exercise tolerance decreased [Not Recovered/Not Resolved]
  - Hypophagia [Recovered/Resolved]
  - Heavy menstrual bleeding [Unknown]
  - Musculoskeletal stiffness [Not Recovered/Not Resolved]
  - Abdominal distension [Recovered/Resolved]
  - Stoma site haemorrhage [Recovered/Resolved]
  - Gait disturbance [Not Recovered/Not Resolved]
  - Parkinson^s disease [Not Recovered/Not Resolved]
  - On and off phenomenon [Not Recovered/Not Resolved]
  - Dyskinesia [Recovered/Resolved]
  - Hallucination, visual [Recovering/Resolving]
  - Unevaluable event [Unknown]
  - Memory impairment [Not Recovered/Not Resolved]
  - Feeling abnormal [Recovering/Resolving]
  - Muscle rigidity [Not Recovered/Not Resolved]
  - Device issue [Unknown]
  - Device occlusion [Unknown]
  - Malaise [Not Recovered/Not Resolved]
  - Depressed mood [Not Recovered/Not Resolved]
  - Urinary incontinence [Not Recovered/Not Resolved]
  - General physical health deterioration [Not Recovered/Not Resolved]
  - Device loosening [Unknown]
  - Unevaluable event [Not Recovered/Not Resolved]
  - On and off phenomenon [Not Recovered/Not Resolved]
  - Incontinence [Not Recovered/Not Resolved]
  - Unevaluable event [Not Recovered/Not Resolved]
  - Unevaluable event [Not Recovered/Not Resolved]
  - Abnormal dreams [Not Recovered/Not Resolved]
  - Unevaluable event [Not Recovered/Not Resolved]
  - Dyskinesia [Not Recovered/Not Resolved]
  - Hypersexuality [Recovered/Resolved]
  - Faeces hard [Recovered/Resolved]
  - Confusional state [Unknown]
